FAERS Safety Report 5320489-3 (Version None)
Quarter: 2007Q2

REPORT INFORMATION
  Report Type: 
  Country: None (occurrence: None)
  Receive Date: 20070509
  Receipt Date: 20070501
  Transmission Date: 20071010
  Serious: Yes (Death, Hospitalization)
  Sender: FDA-Public Use
  Company Number: US-JNJFOC-20060902468

PATIENT
  Age: 59 Year
  Sex: Female

DRUGS (1)
  1. ASPIRIN [Suspect]
     Indication: SUICIDE ATTEMPT
     Route: 048

REACTIONS (7)
  - COMPLETED SUICIDE [None]
  - HAEMATOCRIT DECREASED [None]
  - HAEMOGLOBIN DECREASED [None]
  - INTENTIONAL OVERDOSE [None]
  - METABOLIC ACIDOSIS [None]
  - PNEUMONIA [None]
  - SEPSIS [None]
